FAERS Safety Report 12347192 (Version 1)
Quarter: 2016Q2

REPORT INFORMATION
  Report Type: Spontaneous
  Country: US (occurrence: None)
  Receive Date: 20160506
  Receipt Date: 20160506
  Transmission Date: 20160815
  Serious: No
  Sender: FDA-Public Use
  Company Number: None

PATIENT
  Age: 22 Year
  Sex: Female

DRUGS (1)
  1. ADDERALL XR [Suspect]
     Active Substance: AMPHETAMINE ASPARTATE\AMPHETAMINE SULFATE\DEXTROAMPHETAMINE SACCHARATE\DEXTROAMPHETAMINE SULFATE
     Indication: ATTENTION DEFICIT/HYPERACTIVITY DISORDER
     Dosage: TAKE 1 CAPSULE EVERY EVENING AS DIRECTED QHS/BEDTIME ORAL
     Route: 048

REACTIONS (3)
  - Product physical issue [None]
  - Drug ineffective [None]
  - Product packaging quantity issue [None]

NARRATIVE: CASE EVENT DATE: 20160417
